FAERS Safety Report 7668604-0 (Version None)
Quarter: 2011Q3

REPORT INFORMATION
  Report Type: 
  Country: None (occurrence: None)
  Receive Date: 20110808
  Receipt Date: 20110808
  Transmission Date: 20111222
  Serious: Yes (Other)
  Sender: FDA-Public Use
  Company Number: None

PATIENT
  Age: 54 Year
  Sex: Female
  Weight: 67.585 kg

DRUGS (1)
  1. PENTASA [Suspect]
     Indication: COLITIS ULCERATIVE
     Dosage: 2 TABLETS
     Route: 048
     Dates: start: 20110717, end: 20110719

REACTIONS (6)
  - PARAESTHESIA [None]
  - BALANCE DISORDER [None]
  - GAIT DISTURBANCE [None]
  - GAIT SPASTIC [None]
  - VERTIGO [None]
  - HYPOAESTHESIA [None]
